FAERS Safety Report 7791808-3 (Version None)
Quarter: 2011Q4

REPORT INFORMATION
  Report Type: 
  Country: None (occurrence: None)
  Receive Date: 20111003
  Receipt Date: 20110928
  Transmission Date: 20120403
  Serious: No
  Sender: FDA-Public Use
  Company Number: US-PFIZER INC-2011231755

PATIENT
  Sex: Male

DRUGS (3)
  1. TIKOSYN [Suspect]
     Dosage: 500 UG, 2X/DAY
     Route: 048
     Dates: start: 20090701
  2. COREG [Concomitant]
     Dosage: UNK
  3. LISINOPRIL [Concomitant]
     Dosage: UNK

REACTIONS (4)
  - VOMITING [None]
  - NAUSEA [None]
  - ARRHYTHMIA [None]
  - FOOD POISONING [None]
